FAERS Safety Report 6575812-9 (Version None)
Quarter: 2010Q1

REPORT INFORMATION
  Report Type: 
  Country: None (occurrence: None)
  Receive Date: 20100208
  Receipt Date: 20100208
  Transmission Date: 20100710
  Serious: Yes (Other)
  Sender: FDA-Public Use
  Company Number: None

PATIENT
  Age: 64 Year
  Sex: Male
  Weight: 134.2647 kg

DRUGS (1)
  1. JANUVIA [Suspect]
     Dosage: 100 MG QD PO
     Route: 048
     Dates: start: 20090201, end: 20090701

REACTIONS (1)
  - RASH PRURITIC [None]
